FAERS Safety Report 8444485-2 (Version None)
Quarter: 2012Q2

REPORT INFORMATION
  Report Type: 
  Country: None (occurrence: None)
  Receive Date: 20120618
  Receipt Date: 20120612
  Transmission Date: 20120825
  Serious: Yes (Other)
  Sender: FDA-Public Use
  Company Number: US-ASTRAZENECA-2012SE32232

PATIENT
  Age: 9 Year
  Sex: Male

DRUGS (7)
  1. PULMICORT FLEXHALER [Suspect]
     Dosage: 180 UG/ PUFF, 2 PUFFS IN MORNING AND ONE IN EVENING
     Route: 055
  2. PULMICORT FLEXHALER [Suspect]
     Indication: ASTHMA
     Dosage: 180 UG/ PUFF, 2 PUFFS, TWICE DAILY
     Route: 055
  3. ALBUTEROL [Concomitant]
  4. SINGULAIR [Concomitant]
  5. SYMBICORT [Suspect]
     Indication: ASTHMA
     Dosage: 160/4.5 ?G , TWO PUFFS TWICE DAILY
     Route: 055
  6. AZITHROMYCIN [Concomitant]
     Dosage: 250 MG (MON/WED/FRI)
  7. PREVACID [Concomitant]

REACTIONS (15)
  - SCREAMING [None]
  - INSOMNIA [None]
  - MOOD ALTERED [None]
  - EXERCISE TOLERANCE DECREASED [None]
  - WEIGHT INCREASED [None]
  - SUICIDAL IDEATION [None]
  - SLEEP APNOEA SYNDROME [None]
  - ANXIETY [None]
  - AGITATION [None]
  - ANGER [None]
  - ASTHMA [None]
  - GASTROOESOPHAGEAL REFLUX DISEASE [None]
  - PRESSURE OF SPEECH [None]
  - CRYING [None]
  - AGGRESSION [None]
